FAERS Safety Report 7678587-5 (Version None)
Quarter: 2011Q3

REPORT INFORMATION
  Report Type: 
  Country: None (occurrence: None)
  Receive Date: 20110811
  Receipt Date: 20110803
  Transmission Date: 20111222
  Serious: Yes (Other)
  Sender: FDA-Public Use
  Company Number: PHHY2011GB69874

PATIENT
  Age: 72 Year
  Sex: Female
  Weight: 73 kg

DRUGS (5)
  1. CALCIUM CARBONATE [Concomitant]
     Dates: start: 20110627
  2. ACETAMINOPHEN [Concomitant]
     Dates: start: 20110704
  3. SIMVASTATIN [Suspect]
     Dates: start: 20110726
  4. LISINOPRIL [Concomitant]
     Dates: start: 20110428
  5. ASPIRIN [Concomitant]
     Dates: start: 20110527

REACTIONS (1)
  - JOINT SWELLING [None]
